FAERS Safety Report 4848534-X (Version None)
Quarter: 2005Q4

REPORT INFORMATION
  Report Type: 
  Country: None (occurrence: None)
  Receive Date: 20051206
  Receipt Date: 20051118
  Transmission Date: 20060501
  Serious: Yes (Hospitalization)
  Sender: FDA-Public Use
  Company Number: US200511001525

PATIENT
  Sex: Male

DRUGS (1)
  1. ZYPREXA [Suspect]
     Dates: end: 20030601

REACTIONS (3)
  - ANOXIC ENCEPHALOPATHY [None]
  - DIABETES MELLITUS [None]
  - DIABETIC COMA [None]
